FAERS Safety Report 5046547-9 (Version None)
Quarter: 2006Q2

REPORT INFORMATION
  Report Type: 
  Country: None (occurrence: None)
  Receive Date: 20060630
  Receipt Date: 20060616
  Transmission Date: 20061013
  Serious: Yes (Life-Threatening, Hospitalization)
  Sender: FDA-Public Use
  Company Number: 2006RR-02706

PATIENT
  Age: 57 Year
  Sex: Female

DRUGS (7)
  1. LOSARTAN POTASSIUM(LOSARTAN POTASSIUM) [Suspect]
     Dosage: 50 MG, QD, ORAL
     Route: 048
     Dates: end: 20060513
  2. METFORMIN HYDROCHLORIDE (METFORMIN HYDROCHLORIDE) TABLET, 1000MG [Suspect]
     Indication: DIABETES MELLITUS NON-INSULIN-DEPENDENT
     Dosage: 1 G, TID, ORAL
     Route: 048
     Dates: end: 20060513
  3. RAMIPRIL CAPSULES 10MG (RAMIPRIL) [Suspect]
     Dosage: 10 MG, QD, ORAL
     Route: 048
  4. ASPIRIN [Concomitant]
  5. ATENOLOL [Concomitant]
  6. FUROSEMIDE [Concomitant]
  7. MOXONIDINE [Concomitant]

REACTIONS (9)
  - BASE EXCESS NEGATIVE [None]
  - BLOOD CREATINE INCREASED [None]
  - BLOOD GASES ABNORMAL [None]
  - BLOOD UREA INCREASED [None]
  - DEHYDRATION [None]
  - DIALYSIS [None]
  - LACTIC ACIDOSIS [None]
  - RENAL FAILURE [None]
  - VOMITING [None]
